FAERS Safety Report 5337584-5 (Version None)
Quarter: 2007Q2

REPORT INFORMATION
  Report Type: 
  Country: None (occurrence: None)
  Receive Date: 20070529
  Receipt Date: 20070518
  Transmission Date: 20071010
  Serious: Yes (Other)
  Sender: FDA-Public Use
  Company Number: JP-MERCK-0705USA04108

PATIENT

DRUGS (1)
  1. INDOCIN [Suspect]
     Route: 054
     Dates: start: 19970101

REACTIONS (1)
  - SHOCK [None]
